FAERS Safety Report 5794301-2 (Version None)
Quarter: 2008Q2

REPORT INFORMATION
  Report Type: 
  Country: None (occurrence: None)
  Receive Date: 20080625
  Receipt Date: 20080602
  Transmission Date: 20081010
  Serious: No
  Sender: FDA-Public Use
  Company Number: ADE#08-084

PATIENT

DRUGS (1)
  1. CLONAZEPAM [Suspect]

REACTIONS (1)
  - DRUG INEFFECTIVE [None]
